FAERS Safety Report 15622512 (Version 9)
Quarter: 2023Q4

REPORT INFORMATION
  Report Type: Spontaneous
  Country: US (occurrence: US)
  Receive Date: 20181115
  Receipt Date: 20231206
  Transmission Date: 20240109
  Serious: Yes (Hospitalization, Other)
  Sender: FDA-Public Use
  Company Number: US-BIOMARINAP-US-2018-120751

PATIENT

DRUGS (2)
  1. LARONIDASE [Suspect]
     Active Substance: LARONIDASE
     Indication: Mucopolysaccharidosis I
     Dosage: 43.5 MILLIGRAM, QW
     Route: 041
     Dates: start: 20190519
  2. LARONIDASE [Suspect]
     Active Substance: LARONIDASE
     Dosage: UNK
     Route: 041
     Dates: start: 20181015

REACTIONS (17)
  - Ovarian haemorrhage [Unknown]
  - Ascites [Unknown]
  - Haemoglobin decreased [Unknown]
  - Gastrointestinal haemorrhage [Unknown]
  - Aortic valve disease [Recovering/Resolving]
  - Mitral valve disease [Recovering/Resolving]
  - Eye haemorrhage [Unknown]
  - Abdominal pain [Unknown]
  - Anaphylactic reaction [Recovering/Resolving]
  - Catheterisation cardiac [Not Recovered/Not Resolved]
  - Eye disorder [Unknown]
  - Ocular hyperaemia [Unknown]
  - Urticaria [Recovering/Resolving]
  - Disease progression [Unknown]
  - Eye operation [Unknown]
  - Eye swelling [Not Recovered/Not Resolved]
  - Visual impairment [Not Recovered/Not Resolved]

NARRATIVE: CASE EVENT DATE: 20181105
